FAERS Safety Report 6794965-0 (Version None)
Quarter: 2010Q2

REPORT INFORMATION
  Report Type: 
  Country: None (occurrence: None)
  Receive Date: 20100624
  Receipt Date: 20100624
  Transmission Date: 20101027
  Serious: Yes (Life-Threatening)
  Sender: FDA-Public Use
  Company Number: None

PATIENT
  Age: 57 Year
  Sex: Male
  Weight: 95.2554 kg

DRUGS (1)
  1. VOLTAREN [Suspect]
     Indication: ARTHRITIS
     Dosage: 4MM STRAND 3 X DAY OTHER
     Route: 050
     Dates: start: 20100220, end: 20100528

REACTIONS (4)
  - ANXIETY [None]
  - CONFUSIONAL STATE [None]
  - NERVOUSNESS [None]
  - SELF-INJURIOUS IDEATION [None]
